FAERS Safety Report 7192062-6 (Version None)
Quarter: 2010Q4

REPORT INFORMATION
  Report Type: 
  Country: None (occurrence: None)
  Receive Date: 20101203
  Receipt Date: 20101125
  Transmission Date: 20110411
  Serious: Yes (Hospitalization)
  Sender: FDA-Public Use
  Company Number: 2010SP059883

PATIENT
  Age: 48 Year
  Sex: Female

DRUGS (6)
  1. REFLEX (MIRTAZAPINE /01293201/) [Suspect]
     Indication: PRODUCT USED FOR UNKNOWN INDICATION
     Dosage: 15 MG;QD;PO
     Route: 048
     Dates: start: 20101108, end: 20101110
  2. ALPRAZOLAM [Concomitant]
  3. NITRAZEPAM [Concomitant]
  4. SODIUM PICOSULFATE [Concomitant]
  5. HYDRATE [Concomitant]
  6. NIFEDIPINE [Concomitant]

REACTIONS (2)
  - POSTRENAL FAILURE [None]
  - URINARY RETENTION [None]
